FAERS Safety Report 6978724-1 (Version None)
Quarter: 2010Q3

REPORT INFORMATION
  Report Type: 
  Country: None (occurrence: None)
  Receive Date: 20100913
  Receipt Date: 20100909
  Transmission Date: 20110219
  Serious: Yes (Hospitalization)
  Sender: FDA-Public Use
  Company Number: B0673841A

PATIENT
  Sex: Male

DRUGS (2)
  1. AUGMENTIN '125' [Suspect]
     Route: 065
     Dates: start: 20100503, end: 20100503
  2. ANTI TNF [Concomitant]
     Indication: ANKYLOSING SPONDYLITIS
     Route: 065

REACTIONS (5)
  - ACCIDENTAL EXPOSURE [None]
  - ANAPHYLACTIC REACTION [None]
  - NAUSEA [None]
  - URTICARIA [None]
  - VOMITING [None]
